FAERS Safety Report 9736339 (Version 2)
Quarter: 2013Q4

REPORT INFORMATION
  Report Type: Spontaneous
  Country: JP (occurrence: JP)
  Receive Date: 20131206
  Receipt Date: 20131230
  Transmission Date: 20140711
  Serious: Yes (Hospitalization, Other)
  Sender: FDA-Public Use
  Company Number: JP-ROCHE-1312386

PATIENT
  Age: 55 Year
  Sex: Male
  Weight: 53 kg

DRUGS (11)
  1. XOLAIR [Suspect]
     Indication: ASTHMA
     Route: 065
     Dates: start: 20130518
  2. XOLAIR [Suspect]
     Route: 065
     Dates: start: 20130601
  3. XOLAIR [Suspect]
     Route: 065
     Dates: start: 20130615
  4. XOLAIR [Suspect]
     Route: 065
     Dates: start: 20130629
  5. XOLAIR [Suspect]
     Route: 065
     Dates: start: 20130704, end: 20130704
  6. SYMBICORT [Concomitant]
     Route: 065
     Dates: start: 20110205
  7. SINGULAIR [Concomitant]
     Route: 065
     Dates: start: 20110702
  8. XYZAL [Concomitant]
     Route: 065
     Dates: start: 20120810, end: 20130704
  9. IPD [Concomitant]
     Route: 065
     Dates: start: 20121110, end: 20130704
  10. CLARITH [Concomitant]
     Route: 065
     Dates: start: 20110702
  11. MUCODYNE [Concomitant]
     Route: 065
     Dates: start: 20120121, end: 20130704

REACTIONS (2)
  - Allergic granulomatous angiitis [Recovered/Resolved with Sequelae]
  - Lung disorder [Unknown]
